FAERS Safety Report 6666468-5 (Version None)
Quarter: 2010Q2

REPORT INFORMATION
  Report Type: 
  Country: None (occurrence: None)
  Receive Date: 20100402
  Receipt Date: 20100325
  Transmission Date: 20101027
  Serious: Yes (Other)
  Sender: FDA-Public Use
  Company Number: US-ABBOTT-09P-163-0611798-00

PATIENT
  Sex: Male
  Weight: 68.1 kg

DRUGS (1)
  1. DEPAKOTE ER [Suspect]
     Indication: BIPOLAR DISORDER
     Route: 048
     Dates: start: 20081201, end: 20081201

REACTIONS (9)
  - ABDOMINAL PAIN UPPER [None]
  - ALOPECIA [None]
  - BRAIN INJURY [None]
  - DYSPNOEA [None]
  - HALLUCINATION [None]
  - HEADACHE [None]
  - SELF-INJURIOUS IDEATION [None]
  - SOMNOLENCE [None]
  - VIOLENCE-RELATED SYMPTOM [None]
